FAERS Safety Report 9742633 (Version 1)
Quarter: 2013Q4

REPORT INFORMATION
  Report Type: Spontaneous
  Country: US (occurrence: US)
  Receive Date: 20131210
  Receipt Date: 20131210
  Transmission Date: 20140711
  Serious: No
  Sender: FDA-Public Use
  Company Number: US-GILEAD-2009-0025221

PATIENT
  Age: 79 Year
  Sex: Female

DRUGS (20)
  1. LETAIRIS [Suspect]
     Indication: PULMONARY ARTERIAL HYPERTENSION
     Route: 048
     Dates: start: 20080527, end: 20091015
  2. CARTIA [Concomitant]
  3. VITAMIN D [Concomitant]
  4. FERROUS SULFATE [Concomitant]
  5. POTASSIUM [Concomitant]
  6. CALCIUM [Concomitant]
  7. MULTIVITAMIN [Concomitant]
  8. GLUCOSAMINE [Concomitant]
  9. MELATONIN [Concomitant]
  10. LUNESTA [Concomitant]
  11. ULTRAM [Concomitant]
  12. PRISTIQ [Concomitant]
  13. SYNTHROID [Concomitant]
  14. CARDURA [Concomitant]
  15. FUROSEMIDE [Concomitant]
  16. IMDUR [Concomitant]
  17. METFORMIN [Concomitant]
  18. CLARITIN [Concomitant]
  19. ASPIRIN [Concomitant]
  20. COZAAR [Concomitant]

REACTIONS (1)
  - Red blood cell count decreased [Recovering/Resolving]
